FAERS Safety Report 22397703 (Version 2)
Quarter: 2023Q2

REPORT INFORMATION
  Report Type: Other
  Country: JP (occurrence: JP)
  Receive Date: 20230602
  Receipt Date: 20230628
  Transmission Date: 20230722
  Serious: Yes (Hospitalization)
  Sender: FDA-Public Use
  Company Number: JP-CHUGAI-2021005632

PATIENT
  Age: 75 Year
  Sex: Female
  Weight: 42.8 kg

DRUGS (8)
  1. ATEZOLIZUMAB [Suspect]
     Active Substance: ATEZOLIZUMAB
     Indication: Non-small cell lung cancer
     Dosage: 1200 MILLIGRAM, MOST RECENT DOSE RECEIVED ON 05/APR/2021
     Route: 041
     Dates: start: 20210115
  2. BEVACIZUMAB [Suspect]
     Active Substance: BEVACIZUMAB
     Indication: Non-small cell lung cancer
     Dosage: UNK
     Route: 041
     Dates: start: 20210115, end: 2021
  3. BEVACIZUMAB [Suspect]
     Active Substance: BEVACIZUMAB
     Route: 041
     Dates: start: 20210310, end: 20210405
  4. CARBOPLATIN [Suspect]
     Active Substance: CARBOPLATIN
     Indication: Lung adenocarcinoma
     Dosage: 315 MILLIGRAM
     Route: 041
     Dates: start: 20210115, end: 20210115
  5. CARBOPLATIN [Suspect]
     Active Substance: CARBOPLATIN
     Dosage: 315 MILLIGRAM?MOST RECENT DOSE RECEIVED ON 05/FEB/2021
     Route: 041
     Dates: start: 20210205
  6. PACLITAXEL [Suspect]
     Active Substance: PACLITAXEL
     Indication: Lung adenocarcinoma
     Dosage: 265 MILLIGRAM
     Route: 041
     Dates: start: 20210115, end: 20210115
  7. PACLITAXEL [Suspect]
     Active Substance: PACLITAXEL
     Dosage: MOST RECENT DOSE RECEIVED ON 05/FEB/2021
     Route: 041
     Dates: start: 20210205
  8. ZOSYN [Suspect]
     Active Substance: PIPERACILLIN SODIUM\TAZOBACTAM SODIUM
     Indication: Febrile neutropenia
     Route: 065

REACTIONS (5)
  - Interstitial lung disease [Not Recovered/Not Resolved]
  - Febrile neutropenia [Recovered/Resolved]
  - Weight decreased [Unknown]
  - Decreased appetite [Unknown]
  - Rash [Recovered/Resolved]

NARRATIVE: CASE EVENT DATE: 20210127
